FAERS Safety Report 22361855 (Version 1)
Quarter: 2023Q2

REPORT INFORMATION
  Report Type: Spontaneous
  Country: US (occurrence: None)
  Receive Date: 20230524
  Receipt Date: 20230524
  Transmission Date: 20230721
  Serious: No
  Sender: FDA-Public Use
  Company Number: None

PATIENT
  Age: 62 Year
  Sex: Male
  Weight: 96.16 kg

DRUGS (15)
  1. DEXAMETHASONE SODIUM PHOSPHATE [Suspect]
     Active Substance: DEXAMETHASONE SODIUM PHOSPHATE
     Indication: Oesophageal carcinoma
     Dosage: FREQUENCY : EVERY OTHER WEEK;?
     Route: 042
  2. FOSAPREPITANT [Suspect]
     Active Substance: FOSAPREPITANT
     Indication: Oesophageal carcinoma
     Dosage: FREQUENCY : EVERY OTHER WEEK;?
     Route: 042
  3. ATORVASTATIN [Concomitant]
     Active Substance: ATORVASTATIN
  4. BUPROPION [Concomitant]
     Active Substance: BUPROPION
  5. PROBIOTICS NOS [Concomitant]
     Active Substance: PROBIOTICS NOS
  6. LEVOTHYROXINE [Concomitant]
     Active Substance: LEVOTHYROXINE
  7. LIDOCAINE\PRILOCAINE [Concomitant]
     Active Substance: LIDOCAINE\PRILOCAINE
  8. LITHIUM [Concomitant]
     Active Substance: LITHIUM
  9. VITAMINS [Concomitant]
     Active Substance: VITAMINS
  10. ONDANSETRON [Concomitant]
     Active Substance: ONDANSETRON
  11. PANTOPRAZOLE [Concomitant]
     Active Substance: PANTOPRAZOLE
  12. SUCRALFATE [Concomitant]
     Active Substance: SUCRALFATE
  13. TRAZODONE [Concomitant]
     Active Substance: TRAZODONE HYDROCHLORIDE
  14. VENLAFAXINE [Concomitant]
     Active Substance: VENLAFAXINE HYDROCHLORIDE
  15. VITAMIN D3 [Concomitant]
     Active Substance: CHOLECALCIFEROL

REACTIONS (1)
  - Hospice care [None]
